FAERS Safety Report 15814789 (Version 3)
Quarter: 2019Q2

REPORT INFORMATION
  Report Type: Spontaneous
  Country: US (occurrence: US)
  Receive Date: 20190111
  Receipt Date: 20190606
  Transmission Date: 20190711
  Serious: No
  Sender: FDA-Public Use
  Company Number: US-INTERCEPT-PMOCA2018001619

PATIENT
  Age: 35 Year
  Sex: Female

DRUGS (9)
  1. DIAZEPAM. [Concomitant]
     Active Substance: DIAZEPAM
     Dosage: 5 MG, QD
     Route: 048
  2. ESTRACE [Concomitant]
     Active Substance: ESTRADIOL
     Dosage: 0.1 UNK, UNK
  3. PAROXETINE HCL [Concomitant]
     Active Substance: PAROXETINE HYDROCHLORIDE
     Dosage: 40 MG, UNK
     Route: 048
  4. BENZODIAZEPINE DERIVATIVES [Suspect]
     Active Substance: BENZODIAZEPINE
  5. OCALIVA [Suspect]
     Active Substance: OBETICHOLIC ACID
     Indication: PRIMARY BILIARY CHOLANGITIS
     Dosage: 5 MG, QD
     Route: 048
     Dates: start: 20180509
  6. LIDOCAINE. [Concomitant]
     Active Substance: LIDOCAINE
     Dosage: UNK, QD
     Route: 062
  7. HYDROXYZINE [Concomitant]
     Active Substance: HYDROXYZINE HYDROCHLORIDE
     Indication: PRURITUS
     Dosage: 25 MG, QHS
     Route: 048
  8. AMITIZA [Suspect]
     Active Substance: LUBIPROSTONE
  9. TRAZODONE HYDROCHLORIDE. [Concomitant]
     Active Substance: TRAZODONE HYDROCHLORIDE
     Dosage: 150 MG, UNK
     Route: 048

REACTIONS (29)
  - Somnolence [Unknown]
  - Myofascial pain syndrome [Unknown]
  - Fatigue [Recovering/Resolving]
  - Night sweats [Unknown]
  - Hyperthyroidism [Unknown]
  - Dyskinesia [Unknown]
  - Diarrhoea [Unknown]
  - Constipation [Unknown]
  - Incontinence [Unknown]
  - Depressed mood [Unknown]
  - Eructation [Unknown]
  - Nausea [Unknown]
  - Menstruation irregular [Unknown]
  - Feeling abnormal [Unknown]
  - Memory impairment [Unknown]
  - Thyroiditis [Unknown]
  - Dyspepsia [Unknown]
  - Paraesthesia [Unknown]
  - Fall [Unknown]
  - Joint swelling [Unknown]
  - Muscular weakness [Unknown]
  - Hypoaesthesia [Unknown]
  - Pain [Unknown]
  - Anxiety [Unknown]
  - Abdominal distension [Unknown]
  - Abdominal pain [Unknown]
  - Arthralgia [Unknown]
  - Blood thyroid stimulating hormone decreased [Unknown]
  - Dizziness [Unknown]

NARRATIVE: CASE EVENT DATE: 201811
